FAERS Safety Report 23211696 (Version 1)
Quarter: 2023Q4

REPORT INFORMATION
  Report Type: Spontaneous
  Country: US (occurrence: US)
  Receive Date: 20231121
  Receipt Date: 20231121
  Transmission Date: 20240110
  Serious: Yes (Other)
  Sender: FDA-Public Use
  Company Number: US-ENDO-CASE-0042934

PATIENT

DRUGS (4)
  1. OPANA ER [Suspect]
     Active Substance: OXYMORPHONE HYDROCHLORIDE
  2. OPANA [Suspect]
     Active Substance: OXYMORPHONE HYDROCHLORIDE
  3. FENTANYL [Suspect]
     Active Substance: FENTANYL\FENTANYL CITRATE
  4. MORPHINE [Suspect]
     Active Substance: MORPHINE

REACTIONS (4)
  - Dependence [Unknown]
  - Drug abuse [Unknown]
  - Drug dependence [Unknown]
  - Seizure [Unknown]
